FAERS Safety Report 9762429 (Version 1)
Quarter: 2013Q4

REPORT INFORMATION
  Report Type: Spontaneous
  Country: US (occurrence: US)
  Receive Date: 20131216
  Receipt Date: 20131216
  Transmission Date: 20140711
  Serious: No
  Sender: FDA-Public Use
  Company Number: US-BIOGENIDEC-2013BI103321

PATIENT
  Age: 45 Year
  Sex: Male

DRUGS (4)
  1. TECFIDERA [Suspect]
     Indication: MULTIPLE SCLEROSIS
     Route: 048
     Dates: start: 20131003
  2. LISINOPRIL [Concomitant]
  3. SEROQUEL [Concomitant]
  4. XANAX [Concomitant]

REACTIONS (2)
  - Flushing [Unknown]
  - Abdominal discomfort [Unknown]
